FAERS Safety Report 13955720 (Version 3)
Quarter: 2018Q1

REPORT INFORMATION
  Report Type: Spontaneous
  Country: US (occurrence: US)
  Receive Date: 20170911
  Receipt Date: 20180122
  Transmission Date: 20180508
  Serious: Yes (Death)
  Sender: FDA-Public Use
  Company Number: US-PFIZER INC-2017388321

PATIENT
  Age: 40 Month
  Sex: Male
  Weight: 15 kg

DRUGS (1)
  1. DILANTIN-125 [Suspect]
     Active Substance: PHENYTOIN
     Indication: EPILEPSY
     Dosage: 3.2 G, UNK (220MGM/KG, FOUR FLUID OUNCES OF AN ELIXIR)
     Route: 048

REACTIONS (8)
  - Neurological symptom [Fatal]
  - Feeling drunk [Fatal]
  - Accidental poisoning [Fatal]
  - Somnolence [Fatal]
  - Pupillary reflex impaired [Fatal]
  - Lethargy [Fatal]
  - Areflexia [Fatal]
  - Overdose [Fatal]
